FAERS Safety Report 9183530 (Version 1)
Quarter: 2013Q1

REPORT INFORMATION
  Report Type: Spontaneous
  Country: US (occurrence: US)
  Receive Date: 20130322
  Receipt Date: 20130322
  Transmission Date: 20140127
  Serious: No
  Sender: FDA-Public Use
  Company Number: US-BRISTOL-MYERS SQUIBB COMPANY-16443616

PATIENT
  Age: 89 Year
  Sex: Female
  Weight: 56.23 kg

DRUGS (9)
  1. ERBITUX [Suspect]
     Indication: COLORECTAL CANCER
     Dosage: INF:4
     Route: 042
     Dates: start: 20120213
  2. LOTREL [Concomitant]
     Dosage: 1DF= 2.5/10 UNITS, NOS
     Route: 048
  3. ASPIRIN [Concomitant]
     Route: 048
  4. VITAMIN D [Concomitant]
     Dosage: 1DF= 50000 UNITS
  5. SYNTHROID [Concomitant]
     Route: 048
  6. AMBIEN [Concomitant]
     Route: 048
  7. XANAX [Concomitant]
  8. ZOFRAN [Concomitant]
     Dosage: 9-12 HRS PRN
     Route: 048
  9. COMPAZINE [Concomitant]
     Dosage: 1DF= 5-10MG 4-6HRS PRN

REACTIONS (3)
  - Skin disorder [Not Recovered/Not Resolved]
  - Rash [Unknown]
  - Weight increased [Unknown]
